FAERS Safety Report 25720001 (Version 2)
Quarter: 2025Q3

REPORT INFORMATION
  Report Type: Spontaneous
  Country: EU (occurrence: EU)
  Receive Date: 20250825
  Receipt Date: 20250827
  Transmission Date: 20251020
  Serious: Yes (Other)
  Sender: CELLTRION
  Company Number: EU-CELLTRION INC.-2025CZ022534

PATIENT

DRUGS (4)
  1. ADALIMUMAB [Suspect]
     Active Substance: ADALIMUMAB
     Indication: Hidradenitis
     Dosage: 40 MG ONCE WEEKLY/ 40 MG EVERY 1 WEEK / 40 MILLIGRAM, QWK
     Route: 058
     Dates: start: 2018
  2. ADALIMUMAB [Suspect]
     Active Substance: ADALIMUMAB
     Indication: Psoriasis
  3. CLINDAMYCIN [Concomitant]
     Active Substance: CLINDAMYCIN
     Indication: Hidradenitis
  4. RIFAMPIN [Concomitant]
     Active Substance: RIFAMPIN
     Indication: Hidradenitis

REACTIONS (10)
  - Systemic inflammatory response syndrome [Recovering/Resolving]
  - Psoriasis [Recovering/Resolving]
  - Leukocytosis [Unknown]
  - C-reactive protein increased [Unknown]
  - Hidradenitis [Unknown]
  - Abscess [Unknown]
  - Inflammation [Unknown]
  - Loss of personal independence in daily activities [Recovering/Resolving]
  - Drug ineffective [Unknown]
  - Therapeutic product effect decreased [Unknown]
